FAERS Safety Report 9272606 (Version 1)
Quarter: 2013Q2

REPORT INFORMATION
  Report Type: Spontaneous
  Country: US (occurrence: US)
  Receive Date: 20130506
  Receipt Date: 20130506
  Transmission Date: 20140414
  Serious: No
  Sender: FDA-Public Use
  Company Number: US-ASTRAZENECA-2013SE29072

PATIENT
  Age: 60 Year
  Sex: Female
  Weight: 79.4 kg

DRUGS (7)
  1. NEXIUM [Suspect]
     Indication: GASTRITIS
     Route: 048
  2. NEXIUM [Suspect]
     Indication: HIATUS HERNIA
     Route: 048
  3. NEXIUM [Suspect]
     Indication: GASTRITIS
     Route: 048
  4. NEXIUM [Suspect]
     Indication: HIATUS HERNIA
     Route: 048
  5. ASPIRIN [Concomitant]
     Dosage: PRN
     Route: 048
  6. ALEVE [Concomitant]
     Dosage: PRN
     Route: 048
  7. ESTROPIPATE HORMONE [Concomitant]
     Dates: start: 1988

REACTIONS (10)
  - Mucosal erosion [Unknown]
  - Gastrooesophageal sphincter insufficiency [Unknown]
  - Gastrooesophageal reflux disease [Unknown]
  - Syncope [Unknown]
  - Dyspnoea [Unknown]
  - Loss of consciousness [Unknown]
  - Dizziness [Unknown]
  - Pruritus [Not Recovered/Not Resolved]
  - Drug dose omission [Unknown]
  - Off label use [Unknown]
